FAERS Safety Report 18537784 (Version 1)
Quarter: 2020Q4

REPORT INFORMATION
  Report Type: Report from Study
  Country: GB (occurrence: GB)
  Receive Date: 20201124
  Receipt Date: 20201124
  Transmission Date: 20210114
  Serious: Yes (Other)
  Sender: FDA-Public Use
  Company Number: GB-ROCHE-2712315

PATIENT
  Age: 65 Year
  Sex: Male
  Weight: 74.3 kg

DRUGS (27)
  1. OBINUTUZUMAB. [Suspect]
     Active Substance: OBINUTUZUMAB
     Indication: NON-HODGKIN^S LYMPHOMA
     Dosage: DOSE CONCENTRATION OF GA101: 4 MG/ML?DATE OF MOST RECENT DOSE OF GA101 PRIOR TO AE ONSET: 02/APR/201
     Route: 042
     Dates: start: 20130307
  2. SUCRALFATE. [Concomitant]
     Active Substance: SUCRALFATE
     Dosage: FOR SORE MUCOUS MEMBRANE OF THE MOUTH
     Dates: start: 20150715, end: 201511
  3. OMEPRAZOLE. [Concomitant]
     Active Substance: OMEPRAZOLE
     Indication: GASTROINTESTINAL DISORDER PROPHYLAXIS
     Dates: start: 20170315
  4. COLOMYCIN [Concomitant]
     Dosage: NEBULISER
     Dates: start: 20180201
  5. RAMIPRIL. [Concomitant]
     Active Substance: RAMIPRIL
     Indication: HYPERTENSION
  6. ATENOLOL. [Concomitant]
     Active Substance: ATENOLOL
     Indication: HYPERTENSION
  7. CODEINE PHOSPHATE [Concomitant]
     Active Substance: CODEINE PHOSPHATE
     Indication: COUGH
     Dates: start: 20140128, end: 201512
  8. MOXIFLOXACIN. [Concomitant]
     Active Substance: MOXIFLOXACIN
     Dosage: CHEST SYMPTOM
     Dates: start: 20190327
  9. DITROPAN [Concomitant]
     Active Substance: OXYBUTYNIN CHLORIDE
     Indication: URINARY INCONTINENCE
     Dates: end: 201512
  10. ASPIRIN. [Concomitant]
     Active Substance: ASPIRIN
     Indication: ANGINA PECTORIS
  11. COCODAMOL [Concomitant]
     Active Substance: ACETAMINOPHEN\CODEINE PHOSPHATE
     Indication: PAIN
     Dosage: 8/500 * 2 QDS PRN
  12. DOXYCYCLINE. [Concomitant]
     Active Substance: DOXYCYCLINE
     Dates: start: 201705, end: 201805
  13. BENDAMUSTINE [Suspect]
     Active Substance: BENDAMUSTINE
     Indication: NON-HODGKIN^S LYMPHOMA
     Dosage: DATE OF MOST RECENT DOSE OF BENDAMUSTINE PRIOR TO AE RECEIVED ON 02/AUG/2013
     Route: 042
     Dates: start: 20130308
  14. CODINE LINCTUS [Concomitant]
     Indication: COUGH
     Dates: start: 20150915, end: 201512
  15. SALBUTAMOL [Concomitant]
     Active Substance: ALBUTEROL
     Dates: start: 20180201
  16. ONDANSETRON [Concomitant]
     Active Substance: ONDANSETRON
     Dosage: ANTIEMETIC
     Dates: start: 20130307, end: 201506
  17. ELOCON [Concomitant]
     Active Substance: MOMETASONE FUROATE
     Indication: RASH
     Dates: start: 20130409, end: 201502
  18. LAXIDO [Concomitant]
     Active Substance: POLYETHYLENE GLYCOL 3350\POTASSIUM CHLORIDE\SODIUM BICARBONATE\SODIUM CHLORIDE
     Dosage: PREVENTION OF CONSTIPATION POST CHEMO
     Dates: start: 20130509, end: 201305
  19. ALLOPURINOL. [Concomitant]
     Active Substance: ALLOPURINOL
     Dosage: PREVENTION OF TUMOUR LYSIS SYNDROME
     Dates: start: 20130205
  20. METOCLOPRAMIDE. [Concomitant]
     Active Substance: METOCLOPRAMIDE
     Dosage: ANTIEMETIC
     Dates: start: 20130307, end: 201512
  21. GLYCERYL TRINITRATE [Concomitant]
     Active Substance: NITROGLYCERIN
     Indication: ANGINA PECTORIS
  22. DOXYCYCLINE. [Concomitant]
     Active Substance: DOXYCYCLINE
     Indication: LOWER RESPIRATORY TRACT INFECTION
     Dates: start: 20140128, end: 201402
  23. AMOXICILLIN. [Concomitant]
     Active Substance: AMOXICILLIN
     Indication: LOWER RESPIRATORY TRACT INFECTION
     Dates: start: 20140820, end: 201409
  24. CIPROFLOXACIN. [Concomitant]
     Active Substance: CIPROFLOXACIN
     Dosage: CHEST SYMPTOMS
     Dates: start: 20180628, end: 201812
  25. FLUOXETINE [Concomitant]
     Active Substance: FLUOXETINE HYDROCHLORIDE
     Indication: DEPRESSION
  26. CEFTRIAXONE. [Concomitant]
     Active Substance: CEFTRIAXONE
     Indication: RESPIRATORY TRACT INFECTION
     Dates: start: 20160301, end: 201709
  27. IVIGLOB EX [Concomitant]
     Active Substance: HUMAN IMMUNOGLOBULIN G
     Indication: HYPOGAMMAGLOBULINAEMIA
     Dates: start: 20160330

REACTIONS (1)
  - Hepatic cirrhosis [Not Recovered/Not Resolved]

NARRATIVE: CASE EVENT DATE: 20201014
